FAERS Safety Report 4973948-7 (Version None)
Quarter: 2006Q2

REPORT INFORMATION
  Report Type: 
  Country: None (occurrence: None)
  Receive Date: 20060417
  Receipt Date: 20060410
  Transmission Date: 20061013
  Serious: Yes (Disabling)
  Sender: FDA-Public Use
  Company Number: ES-AVENTIS-200613842GDDC

PATIENT
  Age: 62 Year
  Sex: Male
  Weight: 73 kg

DRUGS (2)
  1. RHODOGIL [Suspect]
     Indication: DENTAL PULP DISORDER
     Route: 048
     Dates: start: 20060126, end: 20060202
  2. RHODOGIL [Suspect]
     Indication: ORAL SOFT TISSUE DISORDER
     Route: 048
     Dates: start: 20060126, end: 20060202

REACTIONS (1)
  - VASCULITIS [None]
